FAERS Safety Report 11926249 (Version 1)
Quarter: 2016Q1

REPORT INFORMATION
  Report Type: Report from Study
  Country: US (occurrence: US)
  Receive Date: 20160119
  Receipt Date: 20160119
  Transmission Date: 20160526
  Serious: Yes (Hospitalization, Other)
  Sender: FDA-Public Use
  Company Number: US-ABBVIE-16K-163-1538240-00

PATIENT
  Age: 68 Year
  Sex: Female

DRUGS (13)
  1. FLUOXETINE [Concomitant]
     Active Substance: FLUOXETINE HYDROCHLORIDE
     Indication: HOT FLUSH
  2. ASPIRIN. [Concomitant]
     Active Substance: ASPIRIN
     Indication: PRODUCT USED FOR UNKNOWN INDICATION
  3. CENTRUM [Concomitant]
     Active Substance: VITAMINS
     Indication: VITAMIN SUPPLEMENTATION
  4. LISINOPRIL. [Concomitant]
     Active Substance: LISINOPRIL
     Indication: HYPERTENSION
  5. HUMIRA [Suspect]
     Active Substance: ADALIMUMAB
     Indication: RHEUMATOID ARTHRITIS
     Route: 058
     Dates: start: 2014, end: 201512
  6. HUMIRA [Suspect]
     Active Substance: ADALIMUMAB
     Indication: RHEUMATOID ARTHRITIS
     Route: 058
     Dates: start: 2013, end: 2014
  7. FLUOXETINE [Concomitant]
     Active Substance: FLUOXETINE HYDROCHLORIDE
     Indication: ANXIETY
  8. FISH OIL [Concomitant]
     Active Substance: FISH OIL
     Indication: MEMORY IMPAIRMENT
  9. HUMIRA [Suspect]
     Active Substance: ADALIMUMAB
     Route: 058
     Dates: start: 20160106
  10. CALCIUM [Concomitant]
     Active Substance: CALCIUM
     Indication: OSTEOPOROSIS
  11. PREDNISONE. [Concomitant]
     Active Substance: PREDNISONE
     Indication: RHEUMATOID ARTHRITIS
  12. LECITHIN [Concomitant]
     Active Substance: LECITHIN
     Indication: MEMORY IMPAIRMENT
  13. METOPROLOL. [Concomitant]
     Active Substance: METOPROLOL
     Indication: HYPERTENSION

REACTIONS (8)
  - Rotator cuff syndrome [Recovering/Resolving]
  - Oxygen saturation decreased [Recovering/Resolving]
  - Injection site pain [Recovering/Resolving]
  - Blood cholesterol increased [Not Recovered/Not Resolved]
  - Joint injury [Recovering/Resolving]
  - Blood triglycerides increased [Not Recovered/Not Resolved]
  - Throat tightness [Recovered/Resolved]
  - Post procedural complication [Recovered/Resolved]

NARRATIVE: CASE EVENT DATE: 2013
